FAERS Safety Report 12162440 (Version 2)
Quarter: 2016Q2

REPORT INFORMATION
  Report Type: Spontaneous
  Country: US (occurrence: US)
  Receive Date: 20160309
  Receipt Date: 20160422
  Transmission Date: 20160815
  Serious: Yes (Other)
  Sender: FDA-Public Use
  Company Number: US-PFIZER INC-2016145405

PATIENT
  Age: 53 Year
  Sex: Female

DRUGS (4)
  1. LIPITOR [Suspect]
     Active Substance: ATORVASTATIN CALCIUM
     Indication: BLOOD TRIGLYCERIDES INCREASED
  2. LIPITOR [Suspect]
     Active Substance: ATORVASTATIN CALCIUM
     Indication: BLOOD CHOLESTEROL ABNORMAL
     Dosage: 20 MG, DAILY (PER DAY)
     Route: 048
     Dates: start: 200905, end: 201007
  3. LISINOPRIL. [Concomitant]
     Active Substance: LISINOPRIL
     Indication: HYPERTENSION
     Dosage: 50 MG, DAILY (PER DAY)
     Dates: start: 200505
  4. ZOCOR [Concomitant]
     Active Substance: SIMVASTATIN
     Indication: BLOOD CHOLESTEROL ABNORMAL
     Dosage: 20 MG, DAILY (PER DAY)
     Dates: start: 201007

REACTIONS (2)
  - Emotional distress [Not Recovered/Not Resolved]
  - Type 2 diabetes mellitus [Not Recovered/Not Resolved]

NARRATIVE: CASE EVENT DATE: 201111
